FAERS Safety Report 5863418-6 (Version None)
Quarter: 2008Q3

REPORT INFORMATION
  Report Type: 
  Country: None (occurrence: None)
  Receive Date: 20080828
  Receipt Date: 20080822
  Transmission Date: 20090109
  Serious: Yes (Other)
  Sender: FDA-Public Use
  Company Number: PHHY2008JP19084

PATIENT

DRUGS (6)
  1. ZOMETA [Suspect]
     Indication: METASTASES TO BONE
     Dosage: 4 MG
     Route: 042
     Dates: start: 20061001, end: 20070401
  2. FLOMOX [Concomitant]
     Indication: INFLAMMATION
     Dosage: 300 MG
     Route: 048
     Dates: start: 20070410, end: 20070416
  3. VOLTAREN [Concomitant]
     Indication: INFLAMMATION
     Dosage: 75 MG
     Route: 048
     Dates: start: 20070410, end: 20070416
  4. CRAVIT [Concomitant]
     Indication: INFLAMMATION
     Dosage: 200 MG
     Route: 048
     Dates: start: 20070423, end: 20070427
  5. FINIBAX [Concomitant]
     Indication: INFLAMMATION
     Dosage: 0.25 MG
     Route: 042
     Dates: start: 20070427, end: 20070502
  6. ZITHROMAX [Concomitant]
     Indication: INFLAMMATION
     Dosage: 500 MG
     Route: 048
     Dates: start: 20070529, end: 20070531

REACTIONS (8)
  - BONE DISORDER [None]
  - DENTAL CLEANING [None]
  - DENTAL DISCOMFORT [None]
  - DENTAL TREATMENT [None]
  - GINGIVAL SWELLING [None]
  - INCISIONAL DRAINAGE [None]
  - OSTEOMYELITIS [None]
  - PURULENT DISCHARGE [None]
